FAERS Safety Report 7640866-5 (Version None)
Quarter: 2011Q3

REPORT INFORMATION
  Report Type: 
  Country: None (occurrence: None)
  Receive Date: 20110728
  Receipt Date: 20110719
  Transmission Date: 20111222
  Serious: Yes (Death, Hospitalization, Other)
  Sender: FDA-Public Use
  Company Number: DE-TEVA-291132GER

PATIENT
  Age: 82 Year
  Sex: Female

DRUGS (4)
  1. SOLIAN, LOSUNG, SANOFI-AVENTIS [Suspect]
     Dosage: 200-500 MG DAILY PER OS
     Route: 048
     Dates: start: 20110221, end: 20110323
  2. ARICEPT [Suspect]
     Dosage: 10 MILLIGRAM;
     Route: 048
     Dates: start: 20090817, end: 20110401
  3. SOLIAN, 200 MG, TABL, SANOFI-AVENTIS [Suspect]
     Dosage: 200 MILLIGRAM;
     Route: 048
     Dates: start: 20110324, end: 20110401
  4. MIRTAZAPINE [Suspect]
     Dosage: 1 DOSAGE FORMS; 15-30 MG DAILY PER OS
     Route: 048
     Dates: start: 20110228, end: 20110401

REACTIONS (1)
  - LONG QT SYNDROME [None]
